FAERS Safety Report 11804620 (Version 4)
Quarter: 2016Q3

REPORT INFORMATION
  Report Type: Report from Study
  Country: GB (occurrence: GB)
  Receive Date: 20151204
  Receipt Date: 20160701
  Transmission Date: 20161109
  Serious: Yes (Life-Threatening, Hospitalization, Other)
  Sender: FDA-Public Use
  Company Number: GB-AMGEN-GBRCT2015118418

PATIENT
  Age: 12 Year
  Sex: Female

DRUGS (31)
  1. BLINATUMOMAB [Suspect]
     Active Substance: BLINATUMOMAB
     Indication: B-CELL LYMPHOMA REFRACTORY
     Dosage: 5 MUG/M2, CONTINUOUS 28 DAY INFUSION
     Route: 042
     Dates: start: 20151103, end: 20151225
  2. POTASSIUM CHLORIDE. [Concomitant]
     Active Substance: POTASSIUM CHLORIDE
     Dosage: 24 MMOL, TDS
     Route: 048
     Dates: start: 2015
  3. HYDROCORTISONE. [Concomitant]
     Active Substance: HYDROCORTISONE
     Indication: PROPHYLAXIS
     Dosage: 100 MG, UNK
     Route: 042
  4. LIGNOCAINE                         /00033401/ [Concomitant]
     Active Substance: LIDOCAINE HYDROCHLORIDE
     Dosage: PATCH 1 OVER PAINFUL AREA
     Dates: start: 20151125
  5. VANCOMYCIN [Concomitant]
     Active Substance: VANCOMYCIN
     Dosage: 660 MG, UNK
     Route: 042
     Dates: start: 20151222, end: 201512
  6. AMITRIPTYLINE [Concomitant]
     Active Substance: AMITRIPTYLINE
     Dosage: 20 MG, QD
     Route: 048
     Dates: start: 20151111
  7. BUSCOPAN [Concomitant]
     Active Substance: BUTYLSCOPOLAMINE BROMIDE
     Dosage: 10 MG, QID
     Route: 042
     Dates: start: 2015, end: 201512
  8. INSULIN [Concomitant]
     Active Substance: INSULIN NOS
     Dosage: 0.1 IU/KG, UNK
     Dates: start: 20151224, end: 201512
  9. FENTANYL. [Concomitant]
     Active Substance: FENTANYL
     Dosage: 200 MUG, UNK
     Route: 002
     Dates: start: 2015, end: 20151129
  10. MIDAZOLAM [Concomitant]
     Active Substance: MIDAZOLAM\MIDAZOLAM HYDROCHLORIDE
     Dosage: 5 MG, Q2H
     Route: 002
     Dates: start: 2015
  11. MILRINONE [Concomitant]
     Active Substance: MILRINONE
     Dosage: UNK
     Route: 042
     Dates: start: 20151225, end: 201512
  12. FUROSEMIDE. [Concomitant]
     Active Substance: FUROSEMIDE
     Dosage: 30 MG, BID
     Route: 042
     Dates: start: 20151217
  13. AMILORIDE [Concomitant]
     Active Substance: AMILORIDE
     Dosage: 10 MG, QD
     Route: 048
     Dates: start: 20151204, end: 20151225
  14. PIRITON [Concomitant]
     Active Substance: CHLORPHENIRAMINE MALEATE
     Indication: PROPHYLAXIS
     Dosage: 10 MG, UNK
     Route: 042
  15. LORAZEPAM. [Concomitant]
     Active Substance: LORAZEPAM
     Dosage: 0.5 -1MG, QID
     Route: 048
     Dates: start: 20151204
  16. MELATONIN [Concomitant]
     Active Substance: MELATONIN
     Dosage: 2 MG, QD
     Route: 048
     Dates: start: 20151226
  17. SPIRONOLACTONE. [Concomitant]
     Active Substance: SPIRONOLACTONE
     Dosage: 50 MG, BID
     Dates: start: 20151218, end: 20151225
  18. CYTARABINE. [Concomitant]
     Active Substance: CYTARABINE
     Dosage: 120 MG, QD
     Route: 042
     Dates: start: 20151231
  19. CLONAZEPAM. [Concomitant]
     Active Substance: CLONAZEPAM
     Dosage: 0.5 MG, BID
     Route: 048
     Dates: start: 2015
  20. MAGNESIUM GLYCEROPHOSPHATE [Concomitant]
     Active Substance: MAGNESIUM GLYCEROPHOSPHATE
     Dosage: 12 MMOL, TDS
     Route: 048
     Dates: start: 2015
  21. SEVREDOL [Concomitant]
     Active Substance: MORPHINE
     Dosage: 20 MG, 2-4 HOURLY
     Route: 048
     Dates: start: 2015, end: 20151119
  22. ORAMORPH [Concomitant]
     Active Substance: MORPHINE SULFATE
     Dosage: 20 MG, 2 TO 4 HOURS
     Dates: start: 20151119, end: 20151129
  23. VITAMIN K [Concomitant]
     Active Substance: PHYTONADIONE
     Dosage: 10 MG, QD
     Route: 042
     Dates: start: 20151118
  24. TRANEXAMIC ACID. [Concomitant]
     Active Substance: TRANEXAMIC ACID
     Dosage: TOPICAL TO NOSE, PRN
     Route: 061
     Dates: start: 20151028
  25. LANSOPRAZOLE. [Concomitant]
     Active Substance: LANSOPRAZOLE
     Dosage: 30 MG, QD
     Route: 048
     Dates: start: 20151230
  26. COTRIMOXAZOLE [Concomitant]
     Active Substance: SULFAMETHOXAZOLE\TRIMETHOPRIM
     Indication: PROPHYLAXIS
     Dosage: 480 MG, BID SAT AND SUN
     Route: 048
     Dates: start: 2015
  27. HYDROXYZINE [Concomitant]
     Active Substance: HYDROXYZINE\HYDROXYZINE HYDROCHLORIDE
     Dosage: 25 MG, QD
     Route: 048
     Dates: start: 2015
  28. LEUPRORELIN [Concomitant]
     Active Substance: LEUPROLIDE ACETATE
     Dosage: 3.75 MG, UNK
     Route: 058
     Dates: start: 20151015, end: 20151114
  29. HYOSCINE [Concomitant]
     Active Substance: SCOPOLAMINE
     Dosage: 1 PATCH, EVERY 72 HOURS
     Route: 062
     Dates: start: 20151112
  30. KETAMINE [Concomitant]
     Active Substance: KETAMINE
     Dosage: 25 MG, QD
     Dates: start: 20151213, end: 20151225
  31. 6-MERCAPTOPURINE MONOHYDRATE [Concomitant]
     Active Substance: MERCAPTOPURINE
     Dosage: 100 MG, QD
     Route: 048
     Dates: start: 20151231

REACTIONS (5)
  - Sinus tachycardia [Recovered/Resolved]
  - Febrile neutropenia [Recovered/Resolved]
  - Hyperglycaemia [Recovered/Resolved]
  - Urinary retention [Recovering/Resolving]
  - Cytokine release syndrome [Recovered/Resolved]

NARRATIVE: CASE EVENT DATE: 20151129
